FAERS Safety Report 14237419 (Version 4)
Quarter: 2018Q3

REPORT INFORMATION
  Report Type: Spontaneous
  Country: GB (occurrence: GB)
  Receive Date: 20171129
  Receipt Date: 20180712
  Transmission Date: 20181010
  Serious: Yes (Hospitalization, Other)
  Sender: FDA-Public Use
  Company Number: GB-PFIZER INC-2017511571

PATIENT
  Age: 58 Year
  Sex: Male

DRUGS (6)
  1. METHYLPREDNISOLONE SODIUM SUCCINATE. [Suspect]
     Active Substance: METHYLPREDNISOLONE SODIUM SUCCINATE
     Indication: STEM CELL TRANSPLANT
     Dosage: 20 MG (1 MG/KG), 1X/DAY
     Route: 042
  2. MYCOPHENOLATE MOFETIL. [Suspect]
     Active Substance: MYCOPHENOLATE MOFETIL
     Indication: STEM CELL TRANSPLANT
     Dosage: 1 G, 2X/DAY
     Route: 042
  3. INFLIXIMAB [Concomitant]
     Active Substance: INFLIXIMAB
     Indication: STEM CELL TRANSPLANT
     Dosage: 2 DF
     Route: 065
  4. METHYLPREDNISOLONE SODIUM SUCCINATE. [Suspect]
     Active Substance: METHYLPREDNISOLONE SODIUM SUCCINATE
     Dosage: 40 MG (2 MG/KG), 1X/DAY
     Route: 042
  5. CICLOSPORIN [Suspect]
     Active Substance: CYCLOSPORINE
     Indication: STEM CELL TRANSPLANT
     Dosage: 125 MG, 2X/DAY
     Route: 048
  6. CLIPPER [Concomitant]
     Active Substance: BECLOMETHASONE DIPROPIONATE
     Dosage: 5 MG, 2X/DAY
     Route: 048

REACTIONS (5)
  - Graft versus host disease in gastrointestinal tract [Unknown]
  - Cytomegalovirus infection [Recovered/Resolved]
  - Gastritis [Recovered/Resolved]
  - Upper gastrointestinal haemorrhage [Recovered/Resolved]
  - Therapy non-responder [Unknown]

NARRATIVE: CASE EVENT DATE: 20171002
